FAERS Safety Report 12989396 (Version 1)
Quarter: 2016Q4

REPORT INFORMATION
  Report Type: Spontaneous
  Country: IE (occurrence: IE)
  Receive Date: 20161201
  Receipt Date: 20161201
  Transmission Date: 20170207
  Serious: Yes (Other)
  Sender: FDA-Public Use
  Company Number: IE-BAXTER-2016BAX059097

PATIENT
  Age: 49 Year
  Sex: Female
  Weight: 60.4 kg

DRUGS (5)
  1. GLUCOSE 5% INTRAVENOUS INFUSION BP [Suspect]
     Active Substance: DEXTROSE
     Indication: MEDICATION DILUTION
     Route: 042
     Dates: start: 20161107
  2. GRANISETRON [Suspect]
     Active Substance: GRANISETRON
     Indication: PREMEDICATION
     Dosage: 30-60 MINS PRE ADMINISTRATION OF THE OXALYPLATIN
     Route: 048
     Dates: start: 201611
  3. DEXAMETHAZONE [Suspect]
     Active Substance: DEXAMETHASONE
     Indication: PREMEDICATION
     Dosage: 30-60 MINS PRE ADMINISTRATION OF THE OXALYPLATIN
     Route: 048
     Dates: start: 201611
  4. OXALIPLATIN. [Suspect]
     Active Substance: OXALIPLATIN
     Indication: COLORECTAL CANCER
     Route: 042
     Dates: start: 20161107
  5. XELODA [Concomitant]
     Active Substance: CAPECITABINE
     Indication: PRODUCT USED FOR UNKNOWN INDICATION
     Route: 048

REACTIONS (2)
  - Laryngospasm [Recovered/Resolved]
  - Bronchospasm [Recovered/Resolved]

NARRATIVE: CASE EVENT DATE: 20161107
